FAERS Safety Report 4632646-X (Version None)
Quarter: 2005Q2

REPORT INFORMATION
  Report Type: 
  Country: None (occurrence: None)
  Receive Date: 20050331
  Receipt Date: 20040909
  Transmission Date: 20051028
  Serious: Yes (Hospitalization)
  Sender: FDA-Public Use
  Company Number: 200414390BCC

PATIENT
  Age: 26 Year
  Sex: Male
  Weight: 99.7913 kg

DRUGS (2)
  1. ALEVE (CAPLET) [Suspect]
     Indication: PAIN
     Dosage: 440 MG, QD, ORAL
     Route: 048
     Dates: start: 20040908, end: 20040909
  2. VENTOLIN [Concomitant]

REACTIONS (3)
  - DEHYDRATION [None]
  - FULL BLOOD COUNT ABNORMAL [None]
  - RECTAL HAEMORRHAGE [None]
